FAERS Safety Report 17441997 (Version 1)
Quarter: 2020Q1

REPORT INFORMATION
  Report Type: Spontaneous
  Country: US (occurrence: US)
  Receive Date: 20200220
  Receipt Date: 20200220
  Transmission Date: 20200409
  Serious: Yes (Hospitalization, Other)
  Sender: FDA-Public Use
  Company Number: US-ABBVIE-20K-163-3221472-00

PATIENT
  Age: 77 Year
  Sex: Female

DRUGS (2)
  1. HUMIRA [Suspect]
     Active Substance: ADALIMUMAB
     Indication: PSORIATIC ARTHROPATHY
     Route: 058
     Dates: start: 201811, end: 201811
  2. HUMIRA [Suspect]
     Active Substance: ADALIMUMAB
     Indication: PSORIASIS
     Route: 058
     Dates: start: 201807, end: 201810

REACTIONS (6)
  - Influenza [Recovering/Resolving]
  - Bronchitis [Unknown]
  - Sciatic nerve neuropathy [Recovering/Resolving]
  - Nerve compression [Recovering/Resolving]
  - Wound complication [Unknown]
  - Cat scratch disease [Unknown]

NARRATIVE: CASE EVENT DATE: 201810
